FAERS Safety Report 25830351 (Version 4)
Quarter: 2025Q4

REPORT INFORMATION
  Report Type: Spontaneous
  Country: US (occurrence: US)
  Receive Date: 20250922
  Receipt Date: 20251205
  Transmission Date: 20260118
  Serious: No
  Sender: NOVARTIS
  Company Number: US-002147023-NVSC2025US140666

PATIENT
  Sex: Female

DRUGS (1)
  1. COSENTYX [Suspect]
     Active Substance: SECUKINUMAB
     Indication: Product used for unknown indication
     Dosage: UNK (300MG/2ML)
     Route: 058

REACTIONS (4)
  - Device issue [Unknown]
  - Injection site pain [Unknown]
  - Device leakage [Unknown]
  - Device malfunction [Unknown]
